FAERS Safety Report 19579432 (Version 1)
Quarter: 2021Q3

REPORT INFORMATION
  Report Type: Spontaneous
  Country: US (occurrence: US)
  Receive Date: 20210720
  Receipt Date: 20210720
  Transmission Date: 20211014
  Serious: No
  Sender: FDA-Public Use
  Company Number: US-JNJFOC-20210723914

PATIENT
  Age: 61 Year
  Sex: Female

DRUGS (24)
  1. TYLENOL [Suspect]
     Active Substance: ACETAMINOPHEN
     Indication: HYPERSENSITIVITY
     Route: 065
     Dates: start: 202104
  2. LOMOTIL [Concomitant]
     Active Substance: ATROPINE SULFATE\DIPHENOXYLATE HYDROCHLORIDE
     Indication: PRODUCT USED FOR UNKNOWN INDICATION
     Dosage: 2.5/0.25 TAKES 2 TABLETS OF THAT 4 TIMES DAILY
     Route: 065
  3. VITAMIN D [ERGOCALCIFEROL] [Concomitant]
     Active Substance: ERGOCALCIFEROL
     Indication: PRODUCT USED FOR UNKNOWN INDICATION
     Dosage: 50,000 UNITS EVERY OTHER DAY TAKEN
     Route: 065
  4. ZYRTEC [Suspect]
     Active Substance: CETIRIZINE HYDROCHLORIDE
     Indication: PREMEDICATION
  5. COVID?19 VACCINE [Concomitant]
     Indication: COVID-19 IMMUNISATION
     Dosage: UNKNOWN STRENGTH/VOLUME/DOSE INJECTION TO LEFT UPPER ARM AT 12:10
     Route: 065
     Dates: start: 20210422
  6. KLONOPIN [Concomitant]
     Active Substance: CLONAZEPAM
     Indication: NECK PAIN
  7. FLEXERIL [Concomitant]
     Active Substance: CYCLOBENZAPRINE HYDROCHLORIDE
     Indication: PRODUCT USED FOR UNKNOWN INDICATION
     Dosage: 10MG TABLETS 3 TIMES DAILY AS NEEDED
     Route: 065
  8. SYNTHROID [Concomitant]
     Active Substance: LEVOTHYROXINE SODIUM
     Indication: HYPOTHYROIDISM
     Route: 065
  9. SALSALATE. [Concomitant]
     Active Substance: SALSALATE
     Indication: PRODUCT USED FOR UNKNOWN INDICATION
     Dosage: 2?500MG TABLETS 3 TIMES DAILY
     Route: 065
  10. KLONOPIN [Concomitant]
     Active Substance: CLONAZEPAM
     Indication: BACK PAIN
     Dosage: 2?1MG TABLETS AT BEDTIME
     Route: 065
  11. BENADRYL [Concomitant]
     Active Substance: DIPHENHYDRAMINE HYDROCHLORIDE
     Indication: HYPERSENSITIVITY
     Dosage: IV
     Route: 065
  12. BENADRYL [Suspect]
     Active Substance: DIPHENHYDRAMINE HYDROCHLORIDE
     Indication: HYPERSENSITIVITY
     Dosage: 50MG TAKEN AS NEEDED
     Route: 065
     Dates: start: 20210422
  13. ADVAIR HFA [Concomitant]
     Active Substance: FLUTICASONE PROPIONATE\SALMETEROL XINAFOATE
     Indication: ASTHMA
     Dosage: 250/50 TWICE DAILY
     Route: 065
  14. CALCIUM OYSTER SHELL [CALCIUM CARBONATE] [Concomitant]
     Indication: PRODUCT USED FOR UNKNOWN INDICATION
     Dosage: ALTERNATES DOSE OF 500MG AND 1000MG ON DAYS TAKES VITAMIN D
     Route: 065
  15. QUESTRAN [Concomitant]
     Active Substance: CHOLESTYRAMINE
     Indication: TOTAL BILE ACIDS
     Route: 065
  16. CARAFATE [Concomitant]
     Active Substance: SUCRALFATE
     Indication: PRODUCT USED FOR UNKNOWN INDICATION
     Route: 065
  17. VITAMIN B12 [Concomitant]
     Active Substance: CYANOCOBALAMIN
     Indication: PRODUCT USED FOR UNKNOWN INDICATION
     Route: 065
  18. BENADRYL [Suspect]
     Active Substance: DIPHENHYDRAMINE HYDROCHLORIDE
     Indication: PREMEDICATION
  19. VITAMIN C [Concomitant]
     Active Substance: ASCORBIC ACID
     Indication: PRODUCT USED FOR UNKNOWN INDICATION
     Route: 065
  20. NORMAL SALINE [Concomitant]
     Active Substance: SODIUM CHLORIDE
     Indication: HYPERSENSITIVITY
     Dosage: IV
     Route: 065
  21. ZYRTEC [Suspect]
     Active Substance: CETIRIZINE HYDROCHLORIDE
     Indication: HYPERSENSITIVITY
     Route: 065
     Dates: start: 20210422
  22. RITALIN [Concomitant]
     Active Substance: METHYLPHENIDATE HYDROCHLORIDE
     Indication: PRODUCT USED FOR UNKNOWN INDICATION
     Route: 065
  23. SINGULAIR [Concomitant]
     Active Substance: MONTELUKAST SODIUM
     Indication: ASTHMA
     Dosage: 10MG TABLETS AT BEDTIME
     Route: 065
  24. SOLU?MEDROL [Concomitant]
     Active Substance: METHYLPREDNISOLONE SODIUM SUCCINATE
     Indication: HYPERSENSITIVITY

REACTIONS (1)
  - Product use in unapproved indication [Unknown]

NARRATIVE: CASE EVENT DATE: 202104
